FAERS Safety Report 6416969-X (Version None)
Quarter: 2009Q4

REPORT INFORMATION
  Report Type: 
  Country: None (occurrence: None)
  Receive Date: 20091027
  Receipt Date: 20090619
  Transmission Date: 20100525
  Serious: No
  Sender: FDA-Public Use
  Company Number: US-ALLERGAN-0908589US

PATIENT
  Age: 69 Year
  Sex: Female

DRUGS (5)
  1. ALPHAGAN P [Suspect]
     Indication: GLAUCOMA
     Dosage: UNK, UNK
     Dates: start: 20090618
  2. ACULAR PRESERVATIVE FREE [Concomitant]
     Dosage: UNK, QID
  3. PRED FORTE [Concomitant]
     Dosage: UNK, QID
  4. ZYMAR [Concomitant]
  5. DILTIAZEM [Concomitant]
     Dosage: 240 MG, QD

REACTIONS (2)
  - ERYTHEMA [None]
  - SOMNOLENCE [None]
